FAERS Safety Report 17337241 (Version 1)
Quarter: 2020Q1

REPORT INFORMATION
  Report Type: Spontaneous
  Country: US (occurrence: US)
  Receive Date: 20200129
  Receipt Date: 20200129
  Transmission Date: 20200409
  Serious: Yes (Other)
  Sender: FDA-Public Use
  Company Number: US-MELINTA THERAPEUTICS, INC-US-MLNT-20-00012

PATIENT
  Age: 65 Year
  Sex: Male

DRUGS (6)
  1. BAXDELA [Suspect]
     Active Substance: DELAFLOXACIN MEGLUMINE
     Indication: OSTEOMYELITIS CHRONIC
     Route: 048
  2. METRONIDAZOLE. [Concomitant]
     Active Substance: METRONIDAZOLE
     Indication: OSTEOMYELITIS CHRONIC
     Dosage: NOT PROVIDED.
     Route: 041
  3. CEFTRIAXONE. [Concomitant]
     Active Substance: CEFTRIAXONE
     Indication: OSTEOMYELITIS CHRONIC
     Dosage: NOT PROVIDED.
  4. VANCOMYCIN [Concomitant]
     Active Substance: VANCOMYCIN
     Indication: OSTEOMYELITIS CHRONIC
     Dosage: NOT PROVIDED.
     Route: 041
  5. CEFEPIME [Concomitant]
     Active Substance: CEFEPIME HYDROCHLORIDE
     Indication: OSTEOMYELITIS CHRONIC
     Dosage: NOT PROVIDED.
     Route: 041
  6. DAPTOMYCIN. [Concomitant]
     Active Substance: DAPTOMYCIN
     Indication: OSTEOMYELITIS CHRONIC
     Dosage: NOT PROVIDED.

REACTIONS (5)
  - Toe amputation [Unknown]
  - Wound treatment [Unknown]
  - Wound closure [Unknown]
  - Off label use [Unknown]
  - Drug effective for unapproved indication [Unknown]
